FAERS Safety Report 10911702 (Version 1)
Quarter: 2015Q1

REPORT INFORMATION
  Report Type: Spontaneous
  Country: US (occurrence: US)
  Receive Date: 20150313
  Receipt Date: 20150313
  Transmission Date: 20150721
  Serious: No
  Sender: FDA-Public Use
  Company Number: US-BIOGENIDEC-2015BI025968

PATIENT
  Age: 16 Year
  Sex: Female

DRUGS (1)
  1. TECFIDERA [Suspect]
     Active Substance: DIMETHYL FUMARATE
     Indication: PRODUCT USED FOR UNKNOWN INDICATION
     Dates: start: 201501, end: 201502

REACTIONS (9)
  - Rash [Unknown]
  - Nausea [Unknown]
  - Dermatitis allergic [Unknown]
  - Drug administered to patient of inappropriate age [Recovered/Resolved]
  - Oropharyngeal pain [Unknown]
  - Erythema [Unknown]
  - General symptom [Unknown]
  - Generalised erythema [Unknown]
  - Diarrhoea [Unknown]

NARRATIVE: CASE EVENT DATE: 201501
